FAERS Safety Report 15735865 (Version 1)
Quarter: 2018Q4

REPORT INFORMATION
  Report Type: Spontaneous
  Country: US (occurrence: US)
  Receive Date: 20181218
  Receipt Date: 20181218
  Transmission Date: 20190205
  Serious: Yes (Hospitalization, Other)
  Sender: FDA-Public Use
  Company Number: None

PATIENT
  Age: 53 Year
  Sex: Male

DRUGS (1)
  1. PROLIA [Suspect]
     Active Substance: DENOSUMAB
     Indication: OSTEOPOROSIS
     Dosage: ?          OTHER FREQUENCY:EVERY 6 MONTHS;?
     Route: 058
     Dates: start: 20170523, end: 20181130

REACTIONS (12)
  - Renal failure [None]
  - Kidney infection [None]
  - Back pain [None]
  - Hyperhidrosis [None]
  - Headache [None]
  - Neck pain [None]
  - Decreased appetite [None]
  - Asthenia [None]
  - Dehydration [None]
  - Vomiting [None]
  - Staphylococcal infection [None]
  - Migraine [None]

NARRATIVE: CASE EVENT DATE: 20181210
